FAERS Safety Report 5075243-7 (Version None)
Quarter: 2006Q3

REPORT INFORMATION
  Report Type: 
  Country: None (occurrence: None)
  Receive Date: 20060804
  Receipt Date: 20060724
  Transmission Date: 20061208
  Serious: Yes (Death, Hospitalization)
  Sender: FDA-Public Use
  Company Number: 8017402

PATIENT
  Age: 52 Year
  Sex: Female

DRUGS (5)
  1. KEPPRA [Suspect]
     Indication: GRAND MAL CONVULSION
     Dosage: 500 MG 2/D PO
     Route: 048
     Dates: start: 20050101, end: 20060101
  2. KEPPRA [Suspect]
     Indication: GRAND MAL CONVULSION
     Dosage: PO
     Route: 048
     Dates: start: 20060101
  3. DILANTIN [Suspect]
     Indication: GRAND MAL CONVULSION
     Dosage: 300 MG PO
     Route: 048
     Dates: start: 20050101, end: 20060501
  4. DILANTIN [Suspect]
     Indication: GRAND MAL CONVULSION
     Dosage: 300 MG PO
     Route: 048
     Dates: start: 20060501
  5. AMITRIPTYLINE HCL [Concomitant]

REACTIONS (5)
  - CEREBRAL ARTERY OCCLUSION [None]
  - CEREBROVASCULAR ACCIDENT [None]
  - DRUG DOSE OMISSION [None]
  - GRAND MAL CONVULSION [None]
  - TREATMENT NONCOMPLIANCE [None]
